FAERS Safety Report 13358669 (Version 4)
Quarter: 2019Q1

REPORT INFORMATION
  Report Type: Spontaneous
  Country: US (occurrence: US)
  Receive Date: 20170322
  Receipt Date: 20190111
  Transmission Date: 20190417
  Serious: Yes (Hospitalization)
  Sender: FDA-Public Use
  Company Number: US-BIOGEN-2017BI00374993

PATIENT
  Sex: Female

DRUGS (1)
  1. AVONEX [Suspect]
     Active Substance: INTERFERON BETA-1A
     Indication: MULTIPLE SCLEROSIS
     Route: 030
     Dates: start: 20060222

REACTIONS (5)
  - Fall [Recovered/Resolved]
  - Ankle fracture [Unknown]
  - Pollakiuria [Unknown]
  - Tibia fracture [Unknown]
  - Gait disturbance [Not Recovered/Not Resolved]
